FAERS Safety Report 11718068 (Version 1)
Quarter: 2015Q4

REPORT INFORMATION
  Report Type: Spontaneous
  Country: CA (occurrence: CA)
  Receive Date: 20151110
  Receipt Date: 20151110
  Transmission Date: 20160304
  Serious: Yes (Hospitalization, Other)
  Sender: FDA-Public Use
  Company Number: CA-ROCHE-1659088

PATIENT
  Age: 89 Year
  Sex: Female

DRUGS (7)
  1. CRESTOR [Concomitant]
     Active Substance: ROSUVASTATIN CALCIUM
  2. XOLAIR [Suspect]
     Active Substance: OMALIZUMAB
     Indication: ASTHMA
     Route: 058
     Dates: start: 20150219
  3. UNIPHYL [Concomitant]
     Active Substance: THEOPHYLLINE ANHYDROUS
  4. ADVAIR HFA [Concomitant]
     Active Substance: FLUTICASONE PROPIONATE\SALMETEROL XINAFOATE
  5. CEPHALEXIN. [Concomitant]
     Active Substance: CEPHALEXIN
     Indication: ASTHMA
  6. SEEBRI [Suspect]
     Active Substance: GLYCOPYRRONIUM
     Indication: CHRONIC OBSTRUCTIVE PULMONARY DISEASE
     Route: 045
     Dates: start: 20140919
  7. RAMIPRIL. [Concomitant]
     Active Substance: RAMIPRIL

REACTIONS (6)
  - Asthma [Unknown]
  - Skin abrasion [Unknown]
  - Laceration [Unknown]
  - Fall [Unknown]
  - Pneumonia [Unknown]
  - Rib fracture [Unknown]

NARRATIVE: CASE EVENT DATE: 20150806
